FAERS Safety Report 5593785-2 (Version None)
Quarter: 2008Q1

REPORT INFORMATION
  Report Type: 
  Country: None (occurrence: None)
  Receive Date: 20080116
  Receipt Date: 20080108
  Transmission Date: 20080703
  Serious: Yes (Hospitalization)
  Sender: FDA-Public Use
  Company Number: FR-BOEHRINGER INGELHEIM PHARMACEUTICALS, INC.-2008-FF-00011FF

PATIENT
  Sex: Male

DRUGS (12)
  1. PERSANTINE [Suspect]
     Route: 048
     Dates: start: 20071205
  2. PREVISCAN [Suspect]
     Indication: THROMBOSIS PROPHYLAXIS
     Route: 048
     Dates: start: 20071204, end: 20071204
  3. PREVISCAN [Suspect]
     Route: 048
     Dates: start: 20071209, end: 20071210
  4. PREVISCAN [Suspect]
     Route: 048
     Dates: start: 20071211, end: 20071211
  5. PREVISCAN [Suspect]
     Route: 048
     Dates: start: 20071212, end: 20071213
  6. ZYLORIC [Concomitant]
     Route: 048
     Dates: start: 20071204
  7. ZOCOR [Concomitant]
     Route: 048
     Dates: start: 20071205
  8. CLAMOXYL [Concomitant]
     Dosage: 1 TO 3 G DAILY
     Route: 048
     Dates: start: 20071201, end: 20071204
  9. STILNOX [Concomitant]
     Route: 048
     Dates: start: 20071201, end: 20071205
  10. MEPRONIZINE [Concomitant]
     Route: 048
     Dates: start: 20071205
  11. APROVEL [Concomitant]
     Route: 048
     Dates: start: 20071202
  12. LASIX [Concomitant]
     Route: 048
     Dates: start: 20071202

REACTIONS (2)
  - EPISTAXIS [None]
  - HAEMARTHROSIS [None]
